FAERS Safety Report 17437084 (Version 1)
Quarter: 2020Q1

REPORT INFORMATION
  Report Type: Spontaneous
  Country: US (occurrence: US)
  Receive Date: 20200219
  Receipt Date: 20200219
  Transmission Date: 20200409
  Serious: Yes (Disabling)
  Sender: FDA-Public Use
  Company Number: US-BAXTER-2020BAX003869

PATIENT
  Age: 52 Year
  Sex: Female

DRUGS (2)
  1. CYTOXAN [Suspect]
     Active Substance: CYCLOPHOSPHAMIDE
     Indication: BREAST CANCER
     Dosage: MISCALCULATED DOSE
     Route: 065
  2. MESNEX [Suspect]
     Active Substance: MESNA
     Indication: PROPHYLAXIS
     Dosage: FOUR TIMES THE STANDARD AMOUNT
     Route: 065

REACTIONS (3)
  - Cardiac disorder [Not Recovered/Not Resolved]
  - Overdose [Unknown]
  - Incorrect dose administered [Unknown]
